FAERS Safety Report 16802242 (Version 3)
Quarter: 2019Q4

REPORT INFORMATION
  Report Type: Report from Study
  Country: US (occurrence: US)
  Receive Date: 20190912
  Receipt Date: 20191031
  Transmission Date: 20200122
  Serious: Yes (Other)
  Sender: FDA-Public Use
  Company Number: PHEH2019US037724

PATIENT
  Age: 3 Year
  Sex: Female

DRUGS (2)
  1. AFINITOR [Suspect]
     Active Substance: EVEROLIMUS
     Dosage: 2 MG, QOD
     Route: 048
     Dates: start: 20190809
  2. AFINITOR [Suspect]
     Active Substance: EVEROLIMUS
     Indication: SEIZURE
     Dosage: 2 MG, QD
     Route: 048

REACTIONS (6)
  - Inappropriate schedule of product administration [Unknown]
  - Stomatitis [Recovered/Resolved]
  - Mouth ulceration [Unknown]
  - Oral mucosal erythema [Recovered/Resolved]
  - Seizure [Unknown]
  - Stomatitis [Unknown]

NARRATIVE: CASE EVENT DATE: 20190816
